FAERS Safety Report 25789473 (Version 2)
Quarter: 2025Q4

REPORT INFORMATION
  Report Type: Spontaneous
  Country: US (occurrence: US)
  Receive Date: 20250911
  Receipt Date: 20251028
  Transmission Date: 20260118
  Serious: No
  Sender: HETERO
  Company Number: US-HETERO-HET2025US05229

PATIENT
  Sex: Female

DRUGS (2)
  1. MAGNESIUM SULFATE\POTASSIUM CHLORIDE\SODIUM SULFATE [Suspect]
     Active Substance: MAGNESIUM SULFATE\POTASSIUM CHLORIDE\SODIUM SULFATE
     Indication: Colonoscopy
     Dosage: UNK (1ST DOSE)
     Route: 048
     Dates: start: 20250827
  2. MAGNESIUM SULFATE\POTASSIUM CHLORIDE\SODIUM SULFATE [Suspect]
     Active Substance: MAGNESIUM SULFATE\POTASSIUM CHLORIDE\SODIUM SULFATE
     Dosage: UNK (2ND DOSE)
     Route: 048
     Dates: start: 20250828

REACTIONS (1)
  - Vomiting [Unknown]

NARRATIVE: CASE EVENT DATE: 20250828
